FAERS Safety Report 16339061 (Version 1)
Quarter: 2019Q2

REPORT INFORMATION
  Report Type: Spontaneous
  Country: US (occurrence: US)
  Receive Date: 20190521
  Receipt Date: 20190521
  Transmission Date: 20190711
  Serious: No
  Sender: FDA-Public Use
  Company Number: US-PFIZER INC-2019214945

PATIENT
  Age: 51 Year
  Sex: Female
  Weight: 87.54 kg

DRUGS (1)
  1. GABAPENTIN. [Suspect]
     Active Substance: GABAPENTIN
     Indication: NEUROPATHY PERIPHERAL
     Dosage: UNK UNK, 1X/DAY (NIGHTTIME)
     Dates: start: 2016

REACTIONS (5)
  - Off label use [Unknown]
  - Weight decreased [Unknown]
  - Fatigue [Unknown]
  - Hunger [Unknown]
  - Drug ineffective for unapproved indication [Unknown]

NARRATIVE: CASE EVENT DATE: 2016
